FAERS Safety Report 18440273 (Version 7)
Quarter: 2021Q3

REPORT INFORMATION
  Report Type: Spontaneous
  Country: JP (occurrence: JP)
  Receive Date: 20201029
  Receipt Date: 20210903
  Transmission Date: 20211014
  Serious: Yes (Hospitalization)
  Sender: FDA-Public Use
  Company Number: JP-TAIHO ONCOLOGY  INC-JPTT200365

PATIENT
  Age: 74 Year
  Sex: Female
  Weight: 47.2 kg

DRUGS (26)
  1. HEPARINOID [Concomitant]
     Active Substance: CHONDROITIN SULFATE (BOVINE)
     Indication: DRY SKIN
     Dosage: APPROPRIATE DOSE, STARTED BEFORE INFORMED CONSENT WAS OBTAINED
     Route: 061
  2. CRAVIT [Concomitant]
     Active Substance: LEVOFLOXACIN
     Indication: SEASONAL ALLERGY
     Dosage: APPROPRIATE DOSE
     Route: 047
     Dates: start: 20200528
  3. CEFTRIAXONE NA [Concomitant]
     Active Substance: CEFTRIAXONE
     Indication: URINARY TRACT INFECTION
     Route: 042
     Dates: start: 20210730
  4. ALMETA [Concomitant]
     Active Substance: ALCLOMETASONE DIPROPIONATE
     Indication: DRY SKIN
     Dosage: APPROPRIATE DOSE, STARTED BEFORE INFORMED CONSENT WAS OBTAINED
     Route: 061
  5. DEXAMETHASONE. [Concomitant]
     Active Substance: DEXAMETHASONE
     Indication: STOMATITIS
     Dosage: APPROPRIATE DOSE
     Route: 049
     Dates: start: 20200601
  6. LAMISIL [Concomitant]
     Active Substance: TERBINAFINE HYDROCHLORIDE
     Indication: DRY SKIN
     Dosage: APPROPRIATE DOSE
     Route: 061
     Dates: start: 20200928
  7. GLUCOSE [Concomitant]
     Active Substance: DEXTROSE
     Indication: TYPE 1 DIABETES MELLITUS
     Dosage: 10 MG/DAY, TAKEN FOR HYPOGLYCEMIA (LEVEL OF BLOOD GLUCOSE: LESS THAN 70)
     Route: 048
     Dates: start: 20201019
  8. FLUOROMETHOLONE. [Concomitant]
     Active Substance: FLUOROMETHOLONE
     Indication: SEASONAL ALLERGY
     Dosage: APPROPRIATE DOSE
     Route: 047
     Dates: start: 20200528
  9. LONSURF [Suspect]
     Active Substance: TIPIRACIL HYDROCHLORIDE\TRIFLURIDINE
     Indication: COLON CANCER
     Dosage: DETAILS NOT REPORTED
     Route: 048
     Dates: start: 20200928
  10. SODIUM GUALENATE HYDRATE [Concomitant]
     Active Substance: SODIUM GUALENATE MONOHYDRATE
     Indication: STOMATITIS
     Dosage: APPROPRIATE DOSE
     Route: 049
     Dates: start: 20200622
  11. NOVORAPID [Concomitant]
     Active Substance: INSULIN ASPART
     Indication: TYPE 1 DIABETES MELLITUS
     Dosage: BLOOD GLUCOSE: 0?150, 4 IU/DOSE; 151?250, 6 IU/DOSE; 251?350, 8 IU/DOSE; EXCEEDING 351, 10 IU/DOSE;
     Route: 058
     Dates: start: 20201019
  12. SODIUM CHLORIDE. [Concomitant]
     Active Substance: SODIUM CHLORIDE
     Indication: HYPONATRAEMIA
     Route: 048
     Dates: start: 20210729
  13. OTHER ANTITUMOR AGENTS [Concomitant]
     Active Substance: UNSPECIFIED INGREDIENT
     Dosage: DETAILS NOT REPORTED
     Route: 048
     Dates: start: 20200601, end: 20200621
  14. OTHER ANTITUMOR AGENTS [Concomitant]
     Active Substance: UNSPECIFIED INGREDIENT
     Dosage: DETAILS NOT REPORTED
     Route: 048
     Dates: start: 20200706, end: 20200906
  15. MYSER [Concomitant]
     Indication: DERMATITIS ACNEIFORM
     Dosage: APPROPRIATE DOSE
     Route: 061
     Dates: start: 20200424
  16. HUMALOG [Concomitant]
     Active Substance: INSULIN LISPRO
     Indication: TYPE 1 DIABETES MELLITUS
     Dosage: 3 DIVIDED DOSES/DAY (5 UNITS IN THE MORNING, 3 UNITS IN THE AFTERNOON, 3 UNITS IN THE EVENING)
     Route: 058
     Dates: start: 20210129
  17. XYZAL [Concomitant]
     Active Substance: LEVOCETIRIZINE DIHYDROCHLORIDE
     Indication: SEASONAL ALLERGY
     Dosage: STARTED BEFORE INFORMED CONSENT WAS OBTAINED
     Route: 048
  18. NOVORAPID [Concomitant]
     Active Substance: INSULIN ASPART
     Dosage: 4 IU/BEFORE BREAKFAST; 3 IU/BEFORE LUNCH; BLOOD GLUCOSE LEVEL: 0?80, DOSE REDUCED BY 1 IU; 81?250, D
     Route: 058
     Dates: start: 20201022
  19. LANTUS [Concomitant]
     Active Substance: INSULIN GLARGINE
     Indication: TYPE 1 DIABETES MELLITUS
     Dosage: AT BEDTIME
     Route: 058
     Dates: start: 20201019
  20. TRESIBA [Concomitant]
     Active Substance: INSULIN DEGLUDEC
     Indication: TYPE 1 DIABETES MELLITUS
     Dosage: BEFORE BREAKFAST
     Route: 058
     Dates: start: 20201022
  21. OTHER ANTITUMOR AGENTS [Concomitant]
     Active Substance: UNSPECIFIED INGREDIENT
     Indication: COLON CANCER
     Dosage: DETAILS NOT REPORTED
     Route: 048
     Dates: start: 20200423, end: 20200524
  22. BEVACIZUMAB(GENETICAL RECOMBINATION) [Concomitant]
     Active Substance: BEVACIZUMAB
     Indication: COLON CANCER
     Dosage: DETAILS NOT REPORTED
     Route: 041
     Dates: start: 20200907
  23. NOVORAPID [Concomitant]
     Active Substance: INSULIN ASPART
     Dosage: BLOOD GLUCOSE: 70?150, 4 IU/DOSE; 151?250, 6 IU/DOSE; 251?350, 8 IU/DOSE; EXCEEDING 351, 10 IU/DOSE;
     Route: 058
     Dates: start: 20201021, end: 20201021
  24. NOVORAPID [Concomitant]
     Active Substance: INSULIN ASPART
     Dosage: 4 IU/BEFORE BREAKFAST; 3 IU/BEFORE LUNCH; BLOOD GLUCOSE LEVEL: 0?80, DOSE REDUCED BY 1 IU; 81?250, D
     Route: 058
     Dates: start: 20201105
  25. KEYTRUDA [Suspect]
     Active Substance: PEMBROLIZUMAB
     Indication: COLON CANCER
     Dosage: 6 CYCLES
     Route: 041
     Dates: start: 20200423, end: 20200817
  26. TRESIBA [Concomitant]
     Active Substance: INSULIN DEGLUDEC
     Dosage: BEFORE BREAKFAST
     Route: 058
     Dates: start: 20201105

REACTIONS (2)
  - Hypopituitarism [Recovering/Resolving]
  - Type 1 diabetes mellitus [Recovering/Resolving]

NARRATIVE: CASE EVENT DATE: 20201019
